FAERS Safety Report 11174826 (Version 1)
Quarter: 2015Q2

REPORT INFORMATION
  Report Type: Spontaneous
  Country: CN (occurrence: CN)
  Receive Date: 20150609
  Receipt Date: 20150609
  Transmission Date: 20150821
  Serious: Yes (Hospitalization, Other)
  Sender: FDA-Public Use
  Company Number: CN-ASTRAZENECA-2015SE56130

PATIENT
  Sex: Male
  Weight: 70 kg

DRUGS (2)
  1. ESOMEPRAZOLE MAGNESIUM. [Suspect]
     Active Substance: ESOMEPRAZOLE MAGNESIUM
     Indication: GASTRIC ULCER
     Route: 048
     Dates: start: 20141003, end: 20141009
  2. KANGFUXIN YE [Suspect]
     Active Substance: HERBALS
     Indication: GASTRIC ULCER
     Route: 048
     Dates: start: 20141003, end: 20141009

REACTIONS (4)
  - Henoch-Schonlein purpura [Recovered/Resolved with Sequelae]
  - Proteinuria [Recovered/Resolved with Sequelae]
  - Hypersensitivity [Recovered/Resolved with Sequelae]
  - Haematuria [Recovered/Resolved with Sequelae]
